FAERS Safety Report 5215600-9 (Version None)
Quarter: 2007Q1

REPORT INFORMATION
  Report Type: 
  Country: None (occurrence: None)
  Receive Date: 20070123
  Receipt Date: 20070109
  Transmission Date: 20070707
  Serious: Yes (Other)
  Sender: FDA-Public Use
  Company Number: PHFR2007GB00510

PATIENT

DRUGS (1)
  1. RITALIN [Suspect]
     Route: 065

REACTIONS (2)
  - DYSPHAGIA [None]
  - GASTROINTESTINAL TUBE INSERTION [None]
